FAERS Safety Report 4541910-4 (Version None)
Quarter: 2004Q4

REPORT INFORMATION
  Report Type: 
  Country: None (occurrence: None)
  Receive Date: 20041227
  Receipt Date: 20041213
  Transmission Date: 20050328
  Serious: Yes (Hospitalization)
  Sender: FDA-Public Use
  Company Number: 2004-0007850

PATIENT
  Age: 32 Year
  Sex: Female
  Weight: 63 kg

DRUGS (5)
  1. VIREAD [Suspect]
     Indication: ACUTE HIV INFECTION
     Dosage: 300 MG, 1 IN 1 D, ORAL
     Route: 048
     Dates: start: 20040830, end: 20040916
  2. LAMIVUDINE [Suspect]
     Indication: ACUTE HIV INFECTION
     Dosage: 150 MG, 2 IN 1 D, ORAL
     Route: 048
     Dates: start: 20040830, end: 20040916
  3. VIRAMUNE [Suspect]
     Indication: ACUTE HIV INFECTION
     Dosage: 200 MG, 2 IN 1 D, ORAL
     Route: 048
     Dates: start: 20040830, end: 20040916
  4. PAROXETINE HCL [Suspect]
     Indication: DEPRESSION
     Dosage: 20 MG, 1 IN 1 D, ORAL
     Route: 048
     Dates: start: 20040906, end: 20040916
  5. VOLTAMICIN (VOLTAMICIN) [Concomitant]

REACTIONS (6)
  - BACTERIAL INFECTION [None]
  - CONJUNCTIVITIS [None]
  - HAEMOPTYSIS [None]
  - MENINGITIS [None]
  - SPUTUM DISCOLOURED [None]
  - SUPERINFECTION [None]
